FAERS Safety Report 8105695-7 (Version None)
Quarter: 2012Q1

REPORT INFORMATION
  Report Type: 
  Country: None (occurrence: None)
  Receive Date: 20120201
  Receipt Date: 20120126
  Transmission Date: 20120608
  Serious: Yes (Other)
  Sender: FDA-Public Use
  Company Number: BR-PFIZER INC-2012022613

PATIENT
  Age: 67 Year
  Sex: Male
  Weight: 88 kg

DRUGS (7)
  1. CADUET [Suspect]
     Indication: BLOOD CHOLESTEROL
     Dosage: 10 MG / 10 MG, UNK
     Route: 048
     Dates: end: 20111016
  2. METOPROLOL SUCCINATE [Concomitant]
     Indication: HYPERTENSION
     Dosage: 25 MG, 1X/DAY
  3. AMLODIPINE BESYLATE [Suspect]
     Indication: HYPERTENSION
     Dosage: 10 MG, UNK
     Dates: start: 20111016
  4. ASPIRIN [Concomitant]
     Dosage: UNK
  5. ATORVASTATIN CALCIUM [Suspect]
     Indication: BLOOD CHOLESTEROL INCREASED
     Dosage: 10 MG, UNK
     Route: 048
     Dates: start: 20111016
  6. DIOVAN HCT [Concomitant]
     Indication: HYPERTENSION
     Dosage: UNK
  7. CADUET [Suspect]
     Indication: HYPERTENSION

REACTIONS (5)
  - AUTONOMIC NERVOUS SYSTEM IMBALANCE [None]
  - THYROIDECTOMY [None]
  - SYNCOPE [None]
  - LOSS OF CONSCIOUSNESS [None]
  - HYPERHIDROSIS [None]
